FAERS Safety Report 17435160 (Version 1)
Quarter: 2020Q1

REPORT INFORMATION
  Report Type: Spontaneous
  Country: US (occurrence: US)
  Receive Date: 20200204
  Receipt Date: 20200204
  Transmission Date: 20200409
  Serious: Yes (Hospitalization)
  Sender: FDA-Public Use
  Company Number: None

PATIENT
  Sex: Female

DRUGS (2)
  1. XIFAXAN [Suspect]
     Active Substance: RIFAXIMIN
     Indication: HEPATIC CIRRHOSIS
     Route: 048
  2. TENOFOVIR DISOPROXIL FUMA [Suspect]
     Active Substance: TENOFOVIR DISOPROXIL FUMARATE
     Indication: HEPATIC CIRRHOSIS
     Route: 048

REACTIONS (7)
  - Peripheral swelling [None]
  - Pyrexia [None]
  - Hepatitis [None]
  - Urinary retention [None]
  - Gait disturbance [None]
  - Enteritis infectious [None]
  - Ascites [None]
